FAERS Safety Report 10330669 (Version 1)
Quarter: 2014Q3

REPORT INFORMATION
  Report Type: Spontaneous
  Country: US (occurrence: None)
  Receive Date: 20140718
  Receipt Date: 20140718
  Transmission Date: 20150326
  Serious: Yes (Disabling)
  Sender: FDA-Public Use
  Company Number: None

PATIENT
  Age: 35 Year
  Sex: Male
  Weight: 79.38 kg

DRUGS (1)
  1. LEVETIRACETAM. [Suspect]
     Active Substance: LEVETIRACETAM
     Indication: EPILEPSY
     Dosage: TAKEN BY MOUTH 2 TABLETS
     Dates: start: 20140709, end: 20140716

REACTIONS (5)
  - Injury [None]
  - Product substitution issue [None]
  - Fall [None]
  - Convulsion [None]
  - Product quality issue [None]

NARRATIVE: CASE EVENT DATE: 20140716
